FAERS Safety Report 18549542 (Version 2)
Quarter: 2020Q4

REPORT INFORMATION
  Report Type: Spontaneous
  Country: FR (occurrence: FR)
  Receive Date: 20201126
  Receipt Date: 20201219
  Transmission Date: 20210114
  Serious: Yes (Life-Threatening, Hospitalization)
  Sender: FDA-Public Use
  Company Number: FR-AUROBINDO-AUR-APL-2020-058294

PATIENT
  Age: 73 Year
  Sex: Male

DRUGS (4)
  1. AMOXICILLIN. [Suspect]
     Active Substance: AMOXICILLIN
     Indication: DENTAL CARE
     Dosage: UNK
     Route: 048
     Dates: start: 20200717, end: 20200721
  2. ONBREZ BREEZHALER [Concomitant]
     Active Substance: INDACATEROL
     Indication: PRODUCT USED FOR UNKNOWN INDICATION
     Dosage: UNK
     Route: 065
  3. SPIRIVA [Concomitant]
     Active Substance: TIOTROPIUM BROMIDE MONOHYDRATE
     Indication: PRODUCT USED FOR UNKNOWN INDICATION
     Dosage: UNK
     Route: 065
  4. VOLTARENE [DICLOFENAC DIETHYLAMINE] [Suspect]
     Active Substance: DICLOFENAC DIETHYLAMINE
     Indication: MYALGIA
     Dosage: 100 MILLIGRAM, 1 TOTAL (ONCE/SINGLE)
     Route: 048
     Dates: start: 20200721

REACTIONS (2)
  - Dyspnoea [Recovered/Resolved]
  - Rash [Recovered/Resolved]

NARRATIVE: CASE EVENT DATE: 20200721
